FAERS Safety Report 8091086-4 (Version None)
Quarter: 2012Q1

REPORT INFORMATION
  Report Type: 
  Country: None (occurrence: None)
  Receive Date: 20120129
  Receipt Date: 20111014
  Transmission Date: 20120608
  Serious: No
  Sender: FDA-Public Use
  Company Number: US-ABBOTT-11P-163-0867062-00

PATIENT

DRUGS (2)
  1. NEXIUM [Concomitant]
     Indication: PRODUCT USED FOR UNKNOWN INDICATION
  2. HUMIRA [Suspect]
     Indication: PSORIASIS
     Route: 058
     Dates: start: 20100401

REACTIONS (5)
  - DRY SKIN [None]
  - INJECTION SITE PRURITUS [None]
  - INCREASED TENDENCY TO BRUISE [None]
  - SKIN DISORDER [None]
  - BLOOD CHOLESTEROL INCREASED [None]
